FAERS Safety Report 11445257 (Version 4)
Quarter: 2016Q1

REPORT INFORMATION
  Report Type: Spontaneous
  Country: US (occurrence: US)
  Receive Date: 20150902
  Receipt Date: 20160321
  Transmission Date: 20160525
  Serious: Yes (Hospitalization, Other)
  Sender: FDA-Public Use
  Company Number: US-BAYER-2015-409008

PATIENT
  Age: 38 Year
  Sex: Female
  Weight: 73.47 kg

DRUGS (7)
  1. YASMIN [Suspect]
     Active Substance: DROSPIRENONE\ETHINYL ESTRADIOL
     Indication: CONTRACEPTION
  2. ATIVAN [Concomitant]
     Active Substance: LORAZEPAM
  3. SUMATRIPTAN. [Concomitant]
     Active Substance: SUMATRIPTAN
  4. ACYCLOVIR [ACICLOVIR] [Concomitant]
     Active Substance: ACYCLOVIR
  5. YAZ [Suspect]
     Active Substance: DROSPIRENONE\ETHINYL ESTRADIOL
     Indication: CONTRACEPTION
     Dosage: UNK
     Dates: start: 2004, end: 20120823
  6. YASMIN [Suspect]
     Active Substance: DROSPIRENONE\ETHINYL ESTRADIOL
     Indication: CONTRACEPTION
     Dosage: UNK
     Dates: start: 2004, end: 201508
  7. PROVENTIL [Concomitant]
     Active Substance: ALBUTEROL
     Indication: DYSPNOEA
     Dosage: AS NEEDED
     Dates: start: 20120822

REACTIONS (23)
  - Jugular vein thrombosis [None]
  - Frustration tolerance decreased [None]
  - General physical health deterioration [None]
  - Transverse sinus thrombosis [None]
  - Cerebral venous thrombosis [None]
  - Migraine [Recovered/Resolved]
  - Seizure [Recovered/Resolved]
  - Hypoaesthesia [Recovered/Resolved]
  - Cerebrovascular accident [None]
  - Mobility decreased [Recovered/Resolved]
  - Pain [None]
  - Superior sagittal sinus thrombosis [None]
  - Injury [None]
  - Anxiety [None]
  - Emotional distress [None]
  - Fatigue [Recovered/Resolved]
  - Cerebral haemorrhage [Recovered/Resolved]
  - Hypoaesthesia oral [Recovered/Resolved]
  - Dizziness [Recovered/Resolved]
  - Vertigo [Recovered/Resolved]
  - Stress [None]
  - Headache [None]
  - Cavernous sinus thrombosis [None]

NARRATIVE: CASE EVENT DATE: 201208
